FAERS Safety Report 4314349-4 (Version None)
Quarter: 2004Q1

REPORT INFORMATION
  Report Type: 
  Country: None (occurrence: None)
  Receive Date: 20040308
  Receipt Date: 20040220
  Transmission Date: 20041129
  Serious: Yes (Other)
  Sender: FDA-Public Use
  Company Number: K200400241

PATIENT
  Age: 65 Year
  Sex: Male
  Weight: 94.3 kg

DRUGS (5)
  1. ALTACE [Suspect]
     Indication: HYPERTENSION
     Dosage: 10 MG, QD, ORAL
     Route: 048
     Dates: start: 20020101
  2. PLAVIX [Concomitant]
  3. ASPIRIN [Concomitant]
  4. ZETIA [Concomitant]
  5. CRESTOR (ROSUVASTATIN) [Concomitant]

REACTIONS (2)
  - DEAFNESS NEUROSENSORY [None]
  - TINNITUS [None]
